FAERS Safety Report 9918728 (Version 1)
Quarter: 2014Q1

REPORT INFORMATION
  Report Type: Other
  Country: IT (occurrence: IT)
  Receive Date: 20140224
  Receipt Date: 20140224
  Transmission Date: 20141002
  Serious: Yes (Other)
  Sender: FDA-Public Use
  Company Number: IT-SUN PHARMACEUTICAL INDUSTRIES LTD-2014SUN00284

PATIENT
  Sex: 0

DRUGS (2)
  1. OXALIPLATINO SUN 5 MG/ML, CONCENTRATO PER SOLUZIONE PER INFUSIONE [Suspect]
     Indication: COLON CANCER METASTATIC
     Dosage: 85 MG / SQUARE METER PER SQM OF BODY SURFACE
     Route: 042
     Dates: start: 20130705, end: 20130923
  2. FLUOROURACILE [Concomitant]
     Indication: COLON CANCER METASTATIC
     Dosage: UNK
     Dates: start: 20130705, end: 20130923

REACTIONS (3)
  - Laryngospasm [Unknown]
  - Stridor [Unknown]
  - Dyspnoea [Unknown]
